FAERS Safety Report 6656141-1 (Version None)
Quarter: 2010Q1

REPORT INFORMATION
  Report Type: 
  Country: None (occurrence: None)
  Receive Date: 20100329
  Receipt Date: 20100316
  Transmission Date: 20100710
  Serious: Yes (Hospitalization)
  Sender: FDA-Public Use
  Company Number: CN-BAYER-201019621GPV

PATIENT
  Age: 44 Year
  Sex: Male

DRUGS (4)
  1. DACARBAZINE [Suspect]
     Indication: SARCOMA
     Dosage: 400 MG/ME2 ON DAY 1 THROUGH 3 PER CYCLE, 3 CYCLES IN TOTAL
     Route: 042
  2. CISPLATIN [Suspect]
     Indication: SARCOMA
     Dosage: 30 MG/ME2 ON DAY 1 TO 3 OF FIRST CYCLE
     Route: 042
  3. CISPLATIN [Suspect]
     Dosage: 30 MG/ME2 ON DAY 1 TO 4 PER CYCLE IN 2 CYCLES
     Route: 042
  4. ADRIAMYCIN PFS [Suspect]
     Indication: SARCOMA
     Dosage: 30 MG/ME2 ON DAYS 1 AND 3 PER CYCLE, 3 CYCLES IN TOTAL
     Route: 042

REACTIONS (2)
  - RENAL FAILURE ACUTE [None]
  - TUMOUR LYSIS SYNDROME [None]
